FAERS Safety Report 16596647 (Version 2)
Quarter: 2019Q4

REPORT INFORMATION
  Report Type: Spontaneous
  Country: US (occurrence: US)
  Receive Date: 20190719
  Receipt Date: 20191227
  Transmission Date: 20200122
  Serious: Yes (Other)
  Sender: FDA-Public Use
  Company Number: US-BIOGEN-2019BI00763922

PATIENT
  Age: 56 Year
  Sex: Female

DRUGS (2)
  1. TECFIDERA [Suspect]
     Active Substance: DIMETHYL FUMARATE
     Indication: MULTIPLE SCLEROSIS
     Route: 048
     Dates: start: 20150317
  2. TECFIDERA [Suspect]
     Active Substance: DIMETHYL FUMARATE
     Route: 048

REACTIONS (8)
  - Cardiac flutter [Recovered/Resolved]
  - Arteriospasm coronary [Recovered/Resolved]
  - Prescribed underdose [Not Recovered/Not Resolved]
  - Stress [Not Recovered/Not Resolved]
  - CD4 lymphocytes abnormal [Unknown]
  - Palpitations [Not Recovered/Not Resolved]
  - CD8 lymphocytes abnormal [Unknown]
  - Drug ineffective [Not Recovered/Not Resolved]

NARRATIVE: CASE EVENT DATE: 20190503
